FAERS Safety Report 8158993-5 (Version None)
Quarter: 2012Q1

REPORT INFORMATION
  Report Type: 
  Country: None (occurrence: None)
  Receive Date: 20120223
  Receipt Date: 20120222
  Transmission Date: 20120608
  Serious: No
  Sender: FDA-Public Use
  Company Number: US-PFIZER INC-2012047508

PATIENT
  Sex: Female
  Weight: 58.957 kg

DRUGS (2)
  1. CHANTIX [Suspect]
     Indication: SMOKING CESSATION THERAPY
     Dosage: 0.5 MG, 1X/DAY
     Route: 048
     Dates: start: 20110301, end: 20110401
  2. CHANTIX [Suspect]
     Dosage: UNK
     Route: 048
     Dates: start: 20111001, end: 20111001

REACTIONS (3)
  - VOMITING [None]
  - MALAISE [None]
  - HEADACHE [None]
